FAERS Safety Report 4312244-8 (Version None)
Quarter: 2004Q1

REPORT INFORMATION
  Report Type: 
  Country: None (occurrence: None)
  Receive Date: 20040304
  Receipt Date: 20040304
  Transmission Date: 20041129
  Serious: No
  Sender: FDA-Public Use
  Company Number: None

PATIENT
  Sex: Female

DRUGS (2)
  1. INFED [Suspect]
     Indication: IRON DEFICIENCY ANAEMIA
     Dates: start: 20040217
  2. INFED [Suspect]
     Indication: RENAL FAILURE CHRONIC
     Dates: start: 20040217

REACTIONS (1)
  - RASH MACULO-PAPULAR [None]
